FAERS Safety Report 12851825 (Version 4)
Quarter: 2016Q4

REPORT INFORMATION
  Report Type: Spontaneous
  Country: TW (occurrence: TW)
  Receive Date: 20161017
  Receipt Date: 20161227
  Transmission Date: 20170207
  Serious: Yes (Death, Other)
  Sender: FDA-Public Use
  Company Number: PHHY2016TW140959

PATIENT
  Age: 52 Year
  Sex: Male

DRUGS (2)
  1. MYCOPHENOLATE [Suspect]
     Active Substance: MYCOPHENOLIC ACID
     Indication: STEM CELL TRANSPLANT
     Route: 065
  2. CICLOSPORIN [Suspect]
     Active Substance: CYCLOSPORINE
     Indication: STEM CELL TRANSPLANT
     Dosage: UNK
     Route: 065

REACTIONS (8)
  - Meningitis cryptococcal [Fatal]
  - Shock [Fatal]
  - Nausea [Fatal]
  - Acute graft versus host disease in skin [Recovering/Resolving]
  - Chronic graft versus host disease [Recovering/Resolving]
  - Headache [Fatal]
  - Metabolic acidosis [Fatal]
  - Vomiting [Fatal]
